FAERS Safety Report 8319067-3 (Version None)
Quarter: 2012Q2

REPORT INFORMATION
  Report Type: 
  Country: None (occurrence: None)
  Receive Date: 20120427
  Receipt Date: 20120419
  Transmission Date: 20120825
  Serious: Yes (Other)
  Sender: FDA-Public Use
  Company Number: AU-PFIZER INC-2012099700

PATIENT
  Age: 16 Year
  Sex: Female
  Weight: 50 kg

DRUGS (5)
  1. LEVETIRACETAM [Suspect]
     Indication: STATUS EPILEPTICUS
  2. CLOBAZAM [Suspect]
     Indication: STATUS EPILEPTICUS
  3. TOPIRAMATE [Suspect]
  4. METHYLPREDNISOLONE [Suspect]
  5. VALPROATE SODIUM [Suspect]
     Indication: STATUS EPILEPTICUS
     Dosage: UNK

REACTIONS (2)
  - DRUG INEFFECTIVE [None]
  - STATUS EPILEPTICUS [None]
